FAERS Safety Report 9126945 (Version 1)
Quarter: 2013Q1

REPORT INFORMATION
  Report Type: Report from Study
  Country: JP (occurrence: JP)
  Receive Date: 20130228
  Receipt Date: 20130228
  Transmission Date: 20140127
  Serious: Yes (Death, Hospitalization, Other)
  Sender: FDA-Public Use
  Company Number: PHHY2013JP018563

PATIENT
  Age: 40 None
  Sex: Male
  Weight: 54 kg

DRUGS (9)
  1. AFINITOR [Suspect]
     Indication: PANCREATIC NEUROENDOCRINE TUMOUR
     Dosage: 10 MG, DAILY
     Route: 048
     Dates: start: 20111222, end: 20120130
  2. AFINITOR [Suspect]
     Dosage: 5 MG, DAILY
     Route: 048
     Dates: start: 20120131
  3. CARBOPLATIN [Suspect]
     Indication: PANCREATIC NEUROENDOCRINE TUMOUR
     Dosage: 60 MG, UNK
     Dates: start: 20111025, end: 20120507
  4. ALIMTA [Suspect]
     Indication: PANCREATIC NEUROENDOCRINE TUMOUR
     Dosage: 150 MG, DAILY
     Dates: start: 20111025
  5. ALIMTA [Suspect]
     Dosage: 200 MG, DAILY
     Dates: start: 20120131
  6. ALIMTA [Suspect]
     Dosage: 150 MG, DAILY
     Dates: start: 20120221, end: 20120507
  7. SANDOSTATIN LAR [Concomitant]
     Indication: PANCREATIC NEUROENDOCRINE TUMOUR
     Dosage: 20 MG, UNK
     Route: 030
     Dates: start: 20111014, end: 20120803
  8. DEXART [Concomitant]
     Dosage: 1.65 MG, UNK
  9. MORPHINE HYDROCHLORIDE TRIHYDRATE [Concomitant]
     Dosage: 200 MG, UNK

REACTIONS (15)
  - Asthenia [Fatal]
  - Hypophagia [Fatal]
  - Pneumonia aspiration [Fatal]
  - Pneumonia bacterial [Unknown]
  - C-reactive protein increased [Unknown]
  - White blood cell count decreased [Recovering/Resolving]
  - Platelet count decreased [Recovering/Resolving]
  - Anaemia [Recovering/Resolving]
  - Bone marrow failure [Unknown]
  - Lymphocyte count decreased [Unknown]
  - Pleural effusion [Unknown]
  - Concomitant disease aggravated [Unknown]
  - Blood alkaline phosphatase increased [Unknown]
  - Gamma-glutamyltransferase increased [Unknown]
  - Blood glucose increased [Unknown]
